FAERS Safety Report 7590746-9 (Version None)
Quarter: 2011Q3

REPORT INFORMATION
  Report Type: 
  Country: None (occurrence: None)
  Receive Date: 20110705
  Receipt Date: 20110621
  Transmission Date: 20111222
  Serious: Yes (Other)
  Sender: FDA-Public Use
  Company Number: PHHY2011RU42877

PATIENT
  Age: 51 Year
  Sex: Female

DRUGS (1)
  1. ZOLEDRONIC ACID [Suspect]
     Indication: OSTEOPOROSIS POSTMENOPAUSAL
     Dosage: 5 MG, UNK
     Route: 042
     Dates: start: 20110512

REACTIONS (10)
  - EYE PAIN [None]
  - EYE HAEMORRHAGE [None]
  - EYELID OEDEMA [None]
  - PHOTOPHOBIA [None]
  - INFLUENZA LIKE ILLNESS [None]
  - VISION BLURRED [None]
  - BLEPHARITIS [None]
  - LACRIMATION INCREASED [None]
  - EYELID BLEEDING [None]
  - OCULAR HYPERAEMIA [None]
